APPROVED DRUG PRODUCT: TRANYLCYPROMINE SULFATE
Active Ingredient: TRANYLCYPROMINE SULFATE
Strength: EQ 10MG BASE
Dosage Form/Route: TABLET;ORAL
Application: A206856 | Product #001 | TE Code: AB
Applicant: NOVITIUM PHARMA LLC
Approved: Apr 17, 2018 | RLD: No | RS: No | Type: RX